FAERS Safety Report 9075084 (Version 1)
Quarter: 2013Q1

REPORT INFORMATION
  Report Type: Report from Study
  Country: US (occurrence: US)
  Receive Date: 20130128
  Receipt Date: 20130128
  Transmission Date: 20140127
  Serious: No
  Sender: FDA-Public Use
  Company Number: US-ABBOTT-12P-163-0899218-00

PATIENT
  Sex: Female
  Weight: 57.66 kg

DRUGS (9)
  1. HUMIRA 40 MG/0.8 ML PEN [Suspect]
     Indication: RHEUMATOID ARTHRITIS
     Dates: start: 20111201
  2. ARAVA [Concomitant]
     Indication: RHEUMATOID ARTHRITIS
  3. ARMOUR THYROID [Concomitant]
     Indication: PRODUCT USED FOR UNKNOWN INDICATION
  4. LAMISIL [Concomitant]
     Indication: PARONYCHIA
  5. PREDNISONE [Concomitant]
     Indication: RHEUMATOID ARTHRITIS
  6. NAPRELAN CR [Concomitant]
     Indication: RHEUMATOID ARTHRITIS
  7. ULTRAM [Concomitant]
     Indication: RHEUMATOID ARTHRITIS
  8. FLEXERIL [Concomitant]
     Indication: MUSCLE SPASMS
  9. HYZAAR [Concomitant]
     Indication: HYPERTENSION
     Dosage: AS NEEDED FOR HIGH BP

REACTIONS (3)
  - Feeling abnormal [Not Recovered/Not Resolved]
  - Myalgia [Not Recovered/Not Resolved]
  - Muscle spasms [Not Recovered/Not Resolved]
